FAERS Safety Report 4305873-9 (Version None)
Quarter: 2004Q1

REPORT INFORMATION
  Report Type: 
  Country: None (occurrence: None)
  Receive Date: 20040225
  Receipt Date: 20040209
  Transmission Date: 20041129
  Serious: Yes (Hospitalization)
  Sender: FDA-Public Use
  Company Number: 2004-DE-00653GD

PATIENT
  Age: 60 Year
  Sex: Female

DRUGS (8)
  1. METHOTREXATE [Suspect]
     Indication: RHEUMATOID ARTHRITIS
     Dosage: 25 MG ONCE A WEEK (NR), SC
     Route: 058
  2. PREDNISONE [Suspect]
     Indication: RHEUMATOID ARTHRITIS
     Dosage: 5 MG (, ONCE),
  3. INFLIXMIAB (INFLIXIMAB) [Suspect]
     Indication: RHEUMATOID ARTHRITIS
     Dosage: 300 MG EVERY 8 WEEKS (NR), IV
     Route: 042
  4. PARACETAMOL (PARACETAMOL) [Concomitant]
  5. LEVOTHYROXINE SODIUM [Concomitant]
  6. HYDROCODONE (HYDROCODONE) [Concomitant]
  7. ALENDRONATE (ALENDRONATE SODIUM) [Concomitant]
  8. FOLIC ACID [Concomitant]

REACTIONS (7)
  - ALANINE AMINOTRANSFERASE INCREASED [None]
  - ASPARTATE AMINOTRANSFERASE INCREASED [None]
  - HEART SOUNDS ABNORMAL [None]
  - PNEUMOCYSTIS CARINII PNEUMONIA [None]
  - PULMONARY EMBOLISM [None]
  - RESPIRATORY DISTRESS [None]
  - TELANGIECTASIA [None]
